FAERS Safety Report 9845296 (Version 1)
Quarter: 2014Q1

REPORT INFORMATION
  Report Type: Spontaneous
  Country: US (occurrence: US)
  Receive Date: 20140127
  Receipt Date: 20140127
  Transmission Date: 20141002
  Serious: No
  Sender: FDA-Public Use
  Company Number: US-BAUSCH-BL-2013-004746

PATIENT
  Sex: Female

DRUGS (2)
  1. ZYLET (LOTEPREDNOL ETABONATE 0.5% AND TOBRAMYCIN 0.3% OPHTHALMIC SUSPE [Suspect]
     Indication: PRODUCT USED FOR UNKNOWN INDICATION
     Dosage: 1 DROP; TWICE DAILY AS NEEDED; RIGHT EYE
     Route: 047
     Dates: start: 20130530, end: 20130820
  2. ZYLET (LOTEPREDNOL ETABONATE 0.5% AND TOBRAMYCIN 0.3% OPHTHALMIC SUSPE [Suspect]
     Dosage: 1 DROP; TWICE DAILY AS NEEDED; LEFT EYE
     Route: 047
     Dates: start: 20130530, end: 20130820

REACTIONS (1)
  - Eye irritation [Unknown]
